FAERS Safety Report 8985423 (Version 3)
Quarter: 2013Q4

REPORT INFORMATION
  Report Type: Report from Study
  Country: BE (occurrence: BE)
  Receive Date: 20121226
  Receipt Date: 20131011
  Transmission Date: 20140711
  Serious: Yes (Hospitalization)
  Sender: FDA-Public Use
  Company Number: BE-ASTRAZENECA-2012SE95094

PATIENT
  Age: 28770 Day
  Sex: Male

DRUGS (12)
  1. AZD6140 [Suspect]
     Indication: CORONARY ARTERY DISEASE
     Route: 048
     Dates: start: 20120601, end: 20121211
  2. NEXIAM [Concomitant]
     Indication: HIATUS HERNIA
     Route: 048
  3. UNI DIAMICRON [Concomitant]
     Indication: TYPE 2 DIABETES MELLITUS
     Route: 048
  4. VITAMINE D [Concomitant]
     Indication: VITAMIN SUPPLEMENTATION
     Route: 048
  5. MAGNESIUM [Concomitant]
     Indication: PROPHYLAXIS
     Route: 048
     Dates: end: 20130427
  6. PRAREDUCT [Concomitant]
     Indication: HYPERCHOLESTEROLAEMIA
     Route: 048
  7. VICTOZA [Concomitant]
     Indication: TYPE 2 DIABETES MELLITUS
     Route: 048
  8. METFORMAX [Concomitant]
     Indication: TYPE 2 DIABETES MELLITUS
     Route: 048
  9. CO APROVEL [Concomitant]
     Indication: HYPERTENSION
     Route: 048
  10. CORDARONE [Concomitant]
     Indication: VENTRICULAR EXTRASYSTOLES
     Route: 048
     Dates: end: 20121212
  11. MOXONIDINE [Concomitant]
     Indication: HYPERTENSION
     Route: 048
     Dates: start: 20120901, end: 20121212
  12. ASA [Concomitant]
     Route: 048

REACTIONS (1)
  - Iron deficiency anaemia [Recovered/Resolved]
